FAERS Safety Report 15864441 (Version 1)
Quarter: 2019Q1

REPORT INFORMATION
  Report Type: Spontaneous
  Country: US (occurrence: US)
  Receive Date: 20190124
  Receipt Date: 20190124
  Transmission Date: 20190417
  Serious: No
  Sender: FDA-Public Use
  Company Number: US-TEIKOKU PHARMA USA-TPU2018-00884

PATIENT
  Sex: Male
  Weight: 124.85 kg

DRUGS (1)
  1. LIDOCAINE PATCH [Suspect]
     Active Substance: LIDOCAINE
     Indication: PAIN
     Dosage: APPLY ONE PATCH TO KNEE, ELBOW, UPPER AND LOWER BACK, SHOULDER, AND HIP FOR PAIN
     Dates: start: 201804

REACTIONS (1)
  - Drug ineffective for unapproved indication [Unknown]
